FAERS Safety Report 6733115-3 (Version None)
Quarter: 2010Q2

REPORT INFORMATION
  Report Type: 
  Country: None (occurrence: None)
  Receive Date: 20100519
  Receipt Date: 20100510
  Transmission Date: 20101027
  Serious: Yes (Hospitalization, Other)
  Sender: FDA-Public Use
  Company Number: US-ABBOTT-10P-163-0644207-00

PATIENT
  Sex: Female
  Weight: 70.37 kg

DRUGS (2)
  1. HUMIRA [Suspect]
     Indication: PSORIASIS
     Route: 058
     Dates: start: 20090701
  2. HUMIRA [Suspect]

REACTIONS (5)
  - ABDOMINAL WOUND DEHISCENCE [None]
  - ERYTHEMA [None]
  - IMPAIRED HEALING [None]
  - INTESTINAL PERFORATION [None]
  - SKIN EXFOLIATION [None]
